FAERS Safety Report 23779769 (Version 1)
Quarter: 2024Q2

REPORT INFORMATION
  Report Type: Spontaneous
  Country: US (occurrence: None)
  Receive Date: 20240424
  Receipt Date: 20240424
  Transmission Date: 20240716
  Serious: Yes (Hospitalization)
  Sender: FDA-Public Use
  Company Number: None

PATIENT
  Age: 91 Year
  Sex: Male

DRUGS (1)
  1. HYDROCHLOROTHIAZIDE [Suspect]
     Active Substance: HYDROCHLOROTHIAZIDE
     Dosage: ONE TAB EVERY DAY PO?
     Route: 048
     Dates: start: 20230524, end: 20230612

REACTIONS (9)
  - Urinary retention [None]
  - Nausea [None]
  - Headache [None]
  - Gait inability [None]
  - Fall [None]
  - Muscle spasms [None]
  - Dyskinesia [None]
  - Abdominal distension [None]
  - Hyponatraemia [None]

NARRATIVE: CASE EVENT DATE: 20230612
